FAERS Safety Report 23130973 (Version 2)
Quarter: 2023Q4

REPORT INFORMATION
  Report Type: Spontaneous
  Country: US (occurrence: US)
  Receive Date: 20231031
  Receipt Date: 20231113
  Transmission Date: 20240110
  Serious: Yes (Hospitalization, Other)
  Sender: FDA-Public Use
  Company Number: US-PFIZER INC-202300337573

PATIENT
  Sex: Female

DRUGS (1)
  1. GENTAMICIN SULFATE [Suspect]
     Active Substance: GENTAMICIN SULFATE
     Indication: Urinary tract infection
     Dosage: 120 MG
     Route: 030

REACTIONS (4)
  - Fall [Unknown]
  - Ear injury [Unknown]
  - Vestibular disorder [Unknown]
  - Dizziness [Unknown]
